FAERS Safety Report 20605257 (Version 2)
Quarter: 2022Q1

REPORT INFORMATION
  Report Type: Spontaneous
  Country: DE (occurrence: DE)
  Receive Date: 20220317
  Receipt Date: 20220324
  Transmission Date: 20220423
  Serious: Yes (Death, Life-Threatening, Hospitalization, Other)
  Sender: FDA-Public Use
  Company Number: DE-AMGEN-DEUSP2022044151

PATIENT

DRUGS (2)
  1. BEVACIZUMAB [Suspect]
     Active Substance: BEVACIZUMAB
     Indication: Hepatocellular carcinoma
     Dosage: 15 MILLIGRAM/KILOGRAM, Q3WK
     Route: 042
  2. ATEZOLIZUMAB [Concomitant]
     Active Substance: ATEZOLIZUMAB
     Indication: Hepatocellular carcinoma
     Dosage: 1200 MILLIGRAM

REACTIONS (28)
  - Death [Fatal]
  - Hepatic failure [Fatal]
  - Immune-mediated hepatitis [Fatal]
  - Ascites [Fatal]
  - Gastrointestinal haemorrhage [Fatal]
  - Hepatic encephalopathy [Unknown]
  - Hepatocellular carcinoma [Unknown]
  - Toxicity to various agents [Unknown]
  - Nephritis [Unknown]
  - Peptic ulcer haemorrhage [Unknown]
  - Performance status decreased [Unknown]
  - Portal vein thrombosis [Unknown]
  - Rheumatic disorder [Unknown]
  - Musculoskeletal disorder [Unknown]
  - Hypophysitis [Unknown]
  - Colitis [Unknown]
  - Seizure [Unknown]
  - Cholangitis [Unknown]
  - Tumour haemorrhage [Unknown]
  - Mucosal inflammation [Unknown]
  - Pulmonary embolism [Unknown]
  - Myocardial infarction [Unknown]
  - Haemorrhage [Unknown]
  - Haemorrhage intracranial [Unknown]
  - Drug effective for unapproved indication [Unknown]
  - Drug ineffective for unapproved indication [Unknown]
  - Therapy partial responder [Unknown]
  - Off label use [Unknown]
